FAERS Safety Report 7550264-0 (Version None)
Quarter: 2011Q2

REPORT INFORMATION
  Report Type: 
  Country: None (occurrence: None)
  Receive Date: 20110615
  Receipt Date: 20110610
  Transmission Date: 20111010
  Serious: Yes (Hospitalization, Other)
  Sender: FDA-Public Use
  Company Number: CA-PFIZER INC-2011078160

PATIENT
  Sex: Female

DRUGS (3)
  1. VARENICLINE TARTRATE [Suspect]
     Dosage: 1 MG, 2X/DAY
  2. VARENICLINE TARTRATE [Suspect]
     Indication: SMOKING CESSATION THERAPY
     Dosage: 0.5 MG, DAILY FOR 3 DAYS
  3. VARENICLINE TARTRATE [Suspect]
     Dosage: UNK

REACTIONS (12)
  - SUICIDAL IDEATION [None]
  - DISTURBANCE IN ATTENTION [None]
  - LABORATORY TEST ABNORMAL [None]
  - CONFUSIONAL STATE [None]
  - AGGRESSION [None]
  - ABNORMAL BEHAVIOUR [None]
  - MANIA [None]
  - RED BLOOD CELL COUNT ABNORMAL [None]
  - NIGHTMARE [None]
  - EMOTIONAL DISORDER [None]
  - AMNESIA [None]
  - WHITE BLOOD CELL COUNT ABNORMAL [None]
